FAERS Safety Report 7380990-8 (Version None)
Quarter: 2011Q1

REPORT INFORMATION
  Report Type: 
  Country: None (occurrence: None)
  Receive Date: 20110329
  Receipt Date: 20110321
  Transmission Date: 20110831
  Serious: Yes (Hospitalization)
  Sender: FDA-Public Use
  Company Number: US-TEVA-272498USA

PATIENT
  Age: 59 Year
  Sex: Male

DRUGS (2)
  1. BACLOFEN [Interacting]
     Indication: MUSCLE RELAXANT THERAPY
  2. TIZANIDINE HCL [Suspect]
     Dosage: 6 MG AT BEDTIME

REACTIONS (5)
  - DELIRIUM [None]
  - DRUG WITHDRAWAL SYNDROME [None]
  - MOTOR DYSFUNCTION [None]
  - AUTONOMIC NERVOUS SYSTEM IMBALANCE [None]
  - DRUG INTERACTION [None]
